FAERS Safety Report 24324195 (Version 1)
Quarter: 2024Q3

REPORT INFORMATION
  Report Type: Spontaneous
  Country: US (occurrence: US)
  Receive Date: 20240916
  Receipt Date: 20240916
  Transmission Date: 20241017
  Serious: No
  Sender: BRISTOL MYERS SQUIBB
  Company Number: US-BRISTOL-MYERS SQUIBB COMPANY-2024-140108

PATIENT
  Age: 80 Year
  Sex: Female
  Weight: 88.45 kg

DRUGS (2)
  1. ELIQUIS [Suspect]
     Active Substance: APIXABAN
     Indication: Cardiac disorder
  2. IBRANCE [Concomitant]
     Active Substance: PALBOCICLIB
     Indication: Neoplasm malignant

REACTIONS (2)
  - Hypoacusis [Unknown]
  - Inability to afford medication [Unknown]
